FAERS Safety Report 23338727 (Version 2)
Quarter: 2023Q4

REPORT INFORMATION
  Report Type: Spontaneous
  Country: US (occurrence: None)
  Receive Date: 20231226
  Receipt Date: 20231228
  Transmission Date: 20240110
  Serious: Yes (Other)
  Sender: FDA-Public Use
  Company Number: 2023A287566

PATIENT
  Age: 41 Year
  Sex: Female
  Weight: 92.5 kg

DRUGS (2)
  1. AIRSUPRA [Suspect]
     Active Substance: ALBUTEROL SULFATE\BUDESONIDE
     Indication: Cough
     Dosage: 180MCG-160MCG, AS REQUIRED
     Route: 055
     Dates: start: 20231213, end: 20231215
  2. AIRSUPRA [Suspect]
     Active Substance: ALBUTEROL SULFATE\BUDESONIDE
     Indication: Wheezing
     Dosage: 180MCG-160MCG, AS REQUIRED
     Route: 055
     Dates: start: 20231213, end: 20231215

REACTIONS (1)
  - Headache [Recovered/Resolved]

NARRATIVE: CASE EVENT DATE: 20231213
